FAERS Safety Report 12305683 (Version 1)
Quarter: 2016Q2

REPORT INFORMATION
  Report Type: Spontaneous
  Country: JP (occurrence: JP)
  Receive Date: 20160426
  Receipt Date: 20160426
  Transmission Date: 20160815
  Serious: Yes (Death)
  Sender: FDA-Public Use
  Company Number: JP-CELGENEUS-JPN-2015100795

PATIENT
  Age: 65 Year
  Sex: Male

DRUGS (2)
  1. SAMTIREL [Suspect]
     Active Substance: ATOVAQUONE
     Indication: PRODUCT USED FOR UNKNOWN INDICATION
     Route: 048
     Dates: start: 201506
  2. REVLIMID [Suspect]
     Active Substance: LENALIDOMIDE
     Indication: PLASMA CELL MYELOMA
     Dosage: 25 MILLIGRAM
     Route: 048
     Dates: start: 20150312, end: 20150601

REACTIONS (1)
  - Plasma cell myeloma [Fatal]

NARRATIVE: CASE EVENT DATE: 20150617
